FAERS Safety Report 12441189 (Version 1)
Quarter: 2016Q2

REPORT INFORMATION
  Report Type: Report from Study
  Country: FR (occurrence: FR)
  Receive Date: 20160607
  Receipt Date: 20160607
  Transmission Date: 20160815
  Serious: Yes (Death, Other)
  Sender: FDA-Public Use
  Company Number: FR-CLINIGEN GROUP PLC/ CLINIGEN HEALTHCARE LTD-FR-CLGN-16-00120

PATIENT
  Age: 73 Year
  Sex: Female

DRUGS (7)
  1. POLYVALENT IMMUNOGLOBULINS [Concomitant]
     Indication: CYTOMEGALOVIRUS INFECTION
     Route: 042
  2. VALGANCICLOVIR. [Concomitant]
     Active Substance: VALGANCICLOVIR
  3. MYCOPHENOLATE MOFETIL. [Concomitant]
     Active Substance: MYCOPHENOLATE MOFETIL
     Indication: IMMUNOSUPPRESSANT DRUG THERAPY
  4. VALGANCICLOVIR. [Concomitant]
     Active Substance: VALGANCICLOVIR
  5. VALGANCICLOVIR. [Concomitant]
     Active Substance: VALGANCICLOVIR
     Indication: CYTOMEGALOVIRUS INFECTION
  6. FOSCARNET?SODIUM [Suspect]
     Active Substance: FOSCARNET SODIUM
     Indication: CYTOMEGALOVIRUS INFECTION
  7. ANTILYMPHOCYTE SERUM [Concomitant]
     Active Substance: THYMOCYTE IMMUNE GLOBULIN NOS
     Indication: IMMUNOSUPPRESSANT DRUG THERAPY

REACTIONS (7)
  - Renal failure [Unknown]
  - Off label use [Unknown]
  - Pneumonia cytomegaloviral [Unknown]
  - Rhinovirus infection [Fatal]
  - Multiple-drug resistance [Unknown]
  - Lung infection [Fatal]
  - Superinfection bacterial [Fatal]
